FAERS Safety Report 18931351 (Version 1)
Quarter: 2021Q1

REPORT INFORMATION
  Report Type: Report from Study
  Country: US (occurrence: US)
  Receive Date: 20210223
  Receipt Date: 20210223
  Transmission Date: 20210420
  Serious: Yes (Other)
  Sender: FDA-Public Use
  Company Number: US-JAZZ-2018-US-005915

PATIENT
  Sex: Female

DRUGS (31)
  1. ADDERALL [Suspect]
     Active Substance: AMPHETAMINE ASPARTATE\AMPHETAMINE SULFATE\DEXTROAMPHETAMINE SACCHARATE\DEXTROAMPHETAMINE SULFATE
     Indication: PRODUCT USED FOR UNKNOWN INDICATION
  2. CURCUMIN [Concomitant]
     Active Substance: CURCUMIN
  3. KRILL OIL [Concomitant]
     Active Substance: DIETARY SUPPLEMENT\KRILL OIL
  4. STOOL SOFTENER (DOCUSATE) [Concomitant]
     Active Substance: DOCUSATE
  5. TRILEPTAL [Suspect]
     Active Substance: OXCARBAZEPINE
     Indication: PRODUCT USED FOR UNKNOWN INDICATION
     Dosage: UNKNOWN DOSE TWICE A DAY
     Route: 065
  6. CALCIUM ASCORBATE [Concomitant]
     Active Substance: CALCIUM ASCORBATE
  7. FOLIC ACID. [Concomitant]
     Active Substance: FOLIC ACID
  8. ALLEGRA ALLERGY [Concomitant]
     Active Substance: FEXOFENADINE HYDROCHLORIDE
  9. TOCOPHEROL [Concomitant]
     Active Substance: TOCOPHEROL
  10. PYRIDOSTIGMINE BR [Concomitant]
     Active Substance: PYRIDOSTIGMINE BROMIDE
  11. TAURINE [Concomitant]
     Active Substance: TAURINE
  12. XYREM [Suspect]
     Active Substance: SODIUM OXYBATE
     Indication: NARCOLEPSY
     Dosage: 2.25 G, BID
     Route: 048
     Dates: start: 201803, end: 2018
  13. XYREM [Suspect]
     Active Substance: SODIUM OXYBATE
     Indication: CATAPLEXY
     Dosage: 3 G, BID
     Route: 048
     Dates: start: 201804, end: 201804
  14. ALLIUM SATIVUM [Concomitant]
     Active Substance: GARLIC
  15. IRON [Concomitant]
     Active Substance: IRON
  16. MAGNESIUM OXIDE. [Concomitant]
     Active Substance: MAGNESIUM OXIDE
  17. NAPROXEN SODIUM. [Concomitant]
     Active Substance: NAPROXEN SODIUM
  18. ASCORBIC ACID. [Concomitant]
     Active Substance: ASCORBIC ACID
  19. CYCLOBENZAPRINE. [Concomitant]
     Active Substance: CYCLOBENZAPRINE
  20. DIGESTIVE ENZYME [Concomitant]
     Active Substance: UNSPECIFIED INGREDIENT
  21. GABAPENTIN. [Concomitant]
     Active Substance: GABAPENTIN
  22. METFORMIN HCL [Concomitant]
     Active Substance: METFORMIN HYDROCHLORIDE
  23. VITAMIN D3 [Concomitant]
     Active Substance: CHOLECALCIFEROL
  24. XYREM [Suspect]
     Active Substance: SODIUM OXYBATE
     Dosage: 2.5 G, BID
     Route: 048
  25. CALCITONIN?SALMON [Concomitant]
     Active Substance: CALCITONIN SALMON
  26. LEVOTHYROXINE. [Concomitant]
     Active Substance: LEVOTHYROXINE
  27. ESOMEPRAZOLE MAGNESIUM. [Concomitant]
     Active Substance: ESOMEPRAZOLE MAGNESIUM
  28. TOPAMAX [Concomitant]
     Active Substance: TOPIRAMATE
  29. METHOTREXATE. [Concomitant]
     Active Substance: METHOTREXATE
  30. SAM?E [Concomitant]
     Active Substance: ADEMETIONINE
  31. SEROTONIN [Concomitant]
     Active Substance: SEROTONIN

REACTIONS (5)
  - Hypertension [Unknown]
  - Tachycardia [Unknown]
  - Pain [Unknown]
  - Urinary incontinence [Recovering/Resolving]
  - Blood sodium decreased [Recovering/Resolving]
